FAERS Safety Report 4765420-4 (Version None)
Quarter: 2005Q3

REPORT INFORMATION
  Report Type: 
  Country: None (occurrence: None)
  Receive Date: 20050908
  Receipt Date: 20050823
  Transmission Date: 20060218
  Serious: No
  Sender: FDA-Public Use
  Company Number: A001-002-006613

PATIENT
  Age: 78 Year
  Sex: Male

DRUGS (7)
  1. ARICEPT [Suspect]
     Indication: DEMENTIA ALZHEIMER'S TYPE
     Dosage: 10 MG, 1 IN 1 D, ORAL
     Route: 048
     Dates: start: 20030101
  2. ASPIRIN [Concomitant]
  3. CELEXA [Concomitant]
  4. FLOMAX [Concomitant]
  5. HYDROCHLOROTHIAZIDE [Concomitant]
  6. VITAMIN B12 [Concomitant]
  7. NORVASC [Concomitant]

REACTIONS (4)
  - DYSKINESIA [None]
  - GRIMACING [None]
  - POST PROCEDURAL COMPLICATION [None]
  - RENAL CELL CARCINOMA STAGE UNSPECIFIED [None]
